FAERS Safety Report 8720734 (Version 2)
Quarter: 2012Q4

REPORT INFORMATION
  Report Type: 
  Country: US (occurrence: US)
  Receive Date: 20120813
  Receipt Date: 20121012
  Transmission Date: 20130627
  Serious: Yes (Death)
  Sender: FDA-Public Use
  Company Number: US-ROCHE-1099975

PATIENT
  Sex: Male

DRUGS (2)
  1. PULMOZYME [Suspect]
     Indication: CYSTIC FIBROSIS
     Route: 065
  2. PULMOZYME [Suspect]
     Indication: CYSTIC FIBROSIS

REACTIONS (2)
  - Cystic fibrosis [Fatal]
  - Respiratory failure [Fatal]
